FAERS Safety Report 6384655-0 (Version None)
Quarter: 2009Q4

REPORT INFORMATION
  Report Type: 
  Country: None (occurrence: None)
  Receive Date: 20091001
  Receipt Date: 20090922
  Transmission Date: 20100525
  Serious: Yes (Other)
  Sender: FDA-Public Use
  Company Number: PHEH2008US03330

PATIENT
  Sex: Female

DRUGS (12)
  1. ZOMETA [Suspect]
  2. RADIATION TREATMENT [Concomitant]
  3. SEROQUEL [Concomitant]
     Dosage: 25 MG
  4. VENLAFAXINE [Concomitant]
  5. XANAX [Concomitant]
     Dosage: 2 MG
  6. LIDOCAINE [Concomitant]
  7. WELLBUTRIN [Concomitant]
     Dosage: 200 MG
  8. CYMBALTA [Concomitant]
  9. CHEMOTHERAPEUTICS NOS [Concomitant]
  10. HERCEPTIN [Concomitant]
  11. MS CONTIN [Concomitant]
  12. MORPHINE SULFATE [Concomitant]

REACTIONS (38)
  - ANXIETY [None]
  - BONE NEOPLASM MALIGNANT [None]
  - BOWEL MOVEMENT IRREGULARITY [None]
  - BRONCHITIS [None]
  - CHRONIC FATIGUE SYNDROME [None]
  - CHRONIC OBSTRUCTIVE PULMONARY DISEASE [None]
  - COUGH [None]
  - DENTAL CARIES [None]
  - DEPRESSION [None]
  - DYSPNOEA [None]
  - EAR PAIN [None]
  - EJECTION FRACTION DECREASED [None]
  - GENERAL PHYSICAL HEALTH DETERIORATION [None]
  - GENERALISED ANXIETY DISORDER [None]
  - HEADACHE [None]
  - INFECTION [None]
  - JAW OPERATION [None]
  - LUNG INFILTRATION [None]
  - MICTURITION URGENCY [None]
  - MIGRAINE WITH AURA [None]
  - MOUTH ULCERATION [None]
  - MUSCULOSKELETAL PAIN [None]
  - NERVOUSNESS [None]
  - OSTEONECROSIS [None]
  - OTITIS MEDIA [None]
  - PAIN [None]
  - PAIN IN EXTREMITY [None]
  - PAIN IN JAW [None]
  - PERIODONTITIS [None]
  - PNEUMONIA [None]
  - POSITRON EMISSION TOMOGRAM ABNORMAL [None]
  - RED BLOOD CELL SEDIMENTATION RATE INCREASED [None]
  - RHINITIS ALLERGIC [None]
  - SURGERY [None]
  - SWELLING [None]
  - TOOTHACHE [None]
  - TYMPANIC MEMBRANE DISORDER [None]
  - URINARY TRACT INFECTION [None]
